FAERS Safety Report 18067547 (Version 2)
Quarter: 2020Q3

REPORT INFORMATION
  Report Type: Report from Study
  Country: None (occurrence: BE)
  Receive Date: 20200724
  Receipt Date: 20200818
  Transmission Date: 20201103
  Serious: Yes (Hospitalization)
  Sender: FDA-Public Use
  Company Number: BE-ABBVIE-19K-013-2835633-00

PATIENT
  Sex: Female
  Weight: 53 kg

DRUGS (12)
  1. DUODOPA [Suspect]
     Active Substance: CARBIDOPA\LEVODOPA
     Dosage: MD=0.5ML; CD=1.5ML/HR 2ML/HR, 2.8ML/HR , DURING 16HRS; ED=1ML 3 HRS
     Route: 050
     Dates: start: 20191021, end: 20191206
  2. DUODOPA [Suspect]
     Active Substance: CARBIDOPA\LEVODOPA
     Dosage: MD=0ML; CD=1.7ML/HR; ED=1ML
     Route: 050
     Dates: start: 20200704, end: 20200708
  3. DUODOPA [Suspect]
     Active Substance: CARBIDOPA\LEVODOPA
     Dosage: MD=3ML; CD=1.4ML/HR; ED=1ML
     Route: 050
     Dates: start: 20200423, end: 20200704
  4. DUODOPA [Suspect]
     Active Substance: CARBIDOPA\LEVODOPA
     Dosage: MD=0ML; CD=1.6ML/HR; ED=0.7ML
     Route: 050
     Dates: start: 20200708, end: 202007
  5. DUODOPA [Suspect]
     Active Substance: CARBIDOPA\LEVODOPA
     Dosage: CD CHANGED TO 2.2ML/H
     Route: 050
     Dates: start: 202008
  6. DUODOPA [Suspect]
     Active Substance: CARBIDOPA\LEVODOPA
     Dosage: CD WAS SET ON 3.7ML/H
     Route: 050
     Dates: start: 20200720, end: 2020
  7. DUODOPA [Suspect]
     Active Substance: CARBIDOPA\LEVODOPA
     Dosage: MD1ML;CD1.5ML/HR UNTIL11AM,CD2ML/HR UNTIL 2PM,CD2.8ML/HR UNTIL STOP,DURING 16HRS;ED 0ML
     Route: 050
     Dates: start: 20190201, end: 20191021
  8. DUODOPA [Suspect]
     Active Substance: CARBIDOPA\LEVODOPA
     Dosage: MD=0.5ML; CD=1.7ML/HR UNTIL 11AM, 2ML/HR UNTIL STOP; ED=1ML EVERY 3 HOURS
     Route: 050
     Dates: start: 20191206, end: 20200212
  9. DUODOPA [Suspect]
     Active Substance: CARBIDOPA\LEVODOPA
     Dosage: MD=0.3ML; CD=1.4ML/HR UNTIL 11AM, 2ML/HR UNTIL STOP; ED=1ML?EVERY 3 HOURS
     Route: 050
     Dates: start: 20200212, end: 20200423
  10. DUODOPA [Suspect]
     Active Substance: CARBIDOPA\LEVODOPA
     Dosage: DOSES CONTINUOUSLY MONITORED AND ADAPTED
     Route: 050
     Dates: start: 20120616, end: 20190201
  11. ROPINIROL [Concomitant]
     Active Substance: ROPINIROLE
     Indication: PRODUCT USED FOR UNKNOWN INDICATION
  12. DUODOPA [Suspect]
     Active Substance: CARBIDOPA\LEVODOPA
     Indication: PARKINSON^S DISEASE
     Dosage: MD=2.5ML, CD=1.6ML/HR DURING 16HRS, ED=1.5ML
     Route: 050
     Dates: start: 20120319, end: 20120616

REACTIONS (12)
  - Mobility decreased [Recovering/Resolving]
  - Parkinson^s disease [Unknown]
  - Tremor [Unknown]
  - Fall [Recovered/Resolved]
  - Wrong technique in device usage process [Unknown]
  - Post-traumatic pain [Unknown]
  - Freezing phenomenon [Not Recovered/Not Resolved]
  - Device use error [Recovered/Resolved]
  - Dyskinesia [Not Recovered/Not Resolved]
  - Incorrect dose administered [Recovered/Resolved]
  - Overdose [Unknown]
  - Pain in extremity [Unknown]

NARRATIVE: CASE EVENT DATE: 2019
